FAERS Safety Report 24335966 (Version 1)
Quarter: 2024Q3

REPORT INFORMATION
  Report Type: Spontaneous
  Country: US (occurrence: US)
  Receive Date: 20240919
  Receipt Date: 20240919
  Transmission Date: 20241016
  Serious: Yes (Hospitalization, Other)
  Sender: SANOFI AVENTIS
  Company Number: US-SA-2024SA268488

PATIENT
  Age: 69 Year
  Sex: Female

DRUGS (1)
  1. LEFLUNOMIDE [Suspect]
     Active Substance: LEFLUNOMIDE
     Indication: Rheumatoid arthritis
     Dosage: UNK

REACTIONS (3)
  - Drug-induced liver injury [Recovering/Resolving]
  - Hypertransaminasaemia [Recovering/Resolving]
  - Hepatotoxicity [Recovering/Resolving]
